FAERS Safety Report 4294685-0 (Version None)
Quarter: 2004Q1

REPORT INFORMATION
  Report Type: 
  Country: None (occurrence: None)
  Receive Date: 20040213
  Receipt Date: 20040202
  Transmission Date: 20041129
  Serious: Yes (Other)
  Sender: FDA-Public Use
  Company Number: NL-BRISTOL-MYERS SQUIBB COMPANY-12493060

PATIENT
  Age: 62 Year
  Sex: Female

DRUGS (5)
  1. AMPHOTERICIN B [Suspect]
     Route: 051
  2. COLISTIN SULFATE [Suspect]
     Route: 051
  3. PROPYLENE GLYCOL [Suspect]
     Route: 051
  4. SIMETHICONE [Suspect]
     Indication: PROPHYLAXIS
     Route: 051
  5. TOBRAMYCIN [Suspect]
     Route: 051

REACTIONS (3)
  - MEDICATION ERROR [None]
  - OXYGEN SATURATION DECREASED [None]
  - PYREXIA [None]
